FAERS Safety Report 7097743-0 (Version None)
Quarter: 2010Q4

REPORT INFORMATION
  Report Type: 
  Country: None (occurrence: None)
  Receive Date: 20101104
  Receipt Date: 20101021
  Transmission Date: 20110411
  Serious: Yes (Other)
  Sender: FDA-Public Use
  Company Number: 2010FI0040

PATIENT
  Age: 6 Year
  Sex: Male

DRUGS (2)
  1. ORFADIN [Suspect]
     Indication: TYROSINAEMIA
     Dosage: 24 MG (24 MG, 1 IN 1 D)
     Dates: start: 20060411
  2. ADURSAL (URSODEOXYCHOLIC ACID) [Concomitant]

REACTIONS (1)
  - ALPHA 1 FOETOPROTEIN INCREASED [None]
